FAERS Safety Report 11745881 (Version 3)
Quarter: 2017Q3

REPORT INFORMATION
  Report Type: Spontaneous
  Country: US (occurrence: US)
  Receive Date: 20151117
  Receipt Date: 20170911
  Transmission Date: 20171127
  Serious: Yes (Other)
  Sender: FDA-Public Use
  Company Number: US-BAYER-2015-459293

PATIENT
  Age: 35 Year
  Sex: Female

DRUGS (7)
  1. WARFARIN [Concomitant]
     Active Substance: WARFARIN
  2. GABAPENTIN. [Concomitant]
     Active Substance: GABAPENTIN
  3. SERTRALINE [Concomitant]
     Active Substance: SERTRALINE HYDROCHLORIDE
  4. TRAZODONE [Concomitant]
     Active Substance: TRAZODONE HYDROCHLORIDE
  5. OMEPRAZOLE. [Concomitant]
     Active Substance: OMEPRAZOLE
  6. IUD NOS [Suspect]
     Active Substance: COPPER OR LEVONORGESTREL
     Indication: CONTRACEPTION
     Dosage: UNK
     Route: 015
     Dates: start: 2011
  7. MIRENA [Suspect]
     Active Substance: LEVONORGESTREL
     Indication: CONTRACEPTION
     Dosage: 20 MCG/24HR, CONT
     Route: 015
     Dates: start: 2011, end: 2011

REACTIONS (15)
  - Thrombosis [Unknown]
  - Abdominal pain lower [Unknown]
  - Pain in extremity [Unknown]
  - Post procedural discomfort [Unknown]
  - Hot flush [Not Recovered/Not Resolved]
  - Uterine perforation [Unknown]
  - Device ineffective [Unknown]
  - Discomfort [Unknown]
  - Pregnancy with contraceptive device [Unknown]
  - Procedural pain [Unknown]
  - Dysmenorrhoea [Not Recovered/Not Resolved]
  - Menstrual disorder [Unknown]
  - Headache [Not Recovered/Not Resolved]
  - Device dislocation [Unknown]
  - Mood swings [Not Recovered/Not Resolved]

NARRATIVE: CASE EVENT DATE: 20071228
